FAERS Safety Report 6094227-3 (Version None)
Quarter: 2009Q1

REPORT INFORMATION
  Report Type: 
  Country: None (occurrence: None)
  Receive Date: 20090226
  Receipt Date: 20090218
  Transmission Date: 20090719
  Serious: Yes (Other)
  Sender: FDA-Public Use
  Company Number: PHHY2009BE05986

PATIENT

DRUGS (1)
  1. ZOMETA [Suspect]

REACTIONS (2)
  - MUSCLE RIGIDITY [None]
  - TREMOR [None]
